FAERS Safety Report 20797699 (Version 1)
Quarter: 2022Q2

REPORT INFORMATION
  Report Type: Spontaneous
  Country: US (occurrence: None)
  Receive Date: 20220506
  Receipt Date: 20220506
  Transmission Date: 20220721
  Serious: Yes (Other)
  Sender: FDA-Public Use
  Company Number: None

PATIENT
  Age: 70 Year
  Sex: Female

DRUGS (6)
  1. PROLIA [Suspect]
     Active Substance: DENOSUMAB
     Indication: Osteoporosis
     Dosage: OTHER FREQUENCY : Q 6 MONTHS;?
     Route: 058
     Dates: start: 202011
  2. CALCIUM/VITAMIN D TABLETS [Concomitant]
  3. LEVOTHYROXINE [Concomitant]
     Active Substance: LEVOTHYROXINE
  4. VITAMINS [Concomitant]
     Active Substance: VITAMINS
  5. OCUVITE [Concomitant]
     Active Substance: VITAMINS
  6. VENLAFAXINE [Concomitant]
     Active Substance: VENLAFAXINE HYDROCHLORIDE

REACTIONS (1)
  - Trismus [None]

NARRATIVE: CASE EVENT DATE: 20220201
